FAERS Safety Report 9303233 (Version 1)
Quarter: 2012Q4

REPORT INFORMATION
  Report Type: Spontaneous
  Country: US (occurrence: None)
  Receive Date: 20121231
  Receipt Date: 20121231
  Transmission Date: 20130627
  Serious: Yes (Hospitalization)
  Sender: FDA-Public Use
  Company Number: ACO_30209_2012

PATIENT
  Age: 40 Year
  Sex: Male
  Weight: 70.3 kg

DRUGS (7)
  1. AMPYRA (DALFAMPRIDINE) TABLET, 10MG [Suspect]
     Indication: GAIT DISTURBANCE
     Route: 048
     Dates: start: 20120416, end: 20120509
  2. BACLOFEN (BACLOFEN) (BACLOFEN) [Suspect]
     Indication: TWITCHING OF LIMBS
     Route: 048
     Dates: start: 20120426
  3. BUPROPION HYDROCHLORIDE) [Concomitant]
  4. PENICILLIN /00000901/ (BENZYLPENICILLIN) [Concomitant]
  5. BENADRYL /00000402/ (DIPHENHYDRAMINE HYDROCHLORIDE) [Concomitant]
  6. VERAPAMIL (VERAPAMIL) [Concomitant]
  7. REBIF (INTERFERON BETA-1A) [Concomitant]

REACTIONS (5)
  - Drug interaction [None]
  - Disorientation [None]
  - Confusional state [None]
  - Fatigue [None]
  - Abnormal behaviour [None]
